FAERS Safety Report 21955970 (Version 14)
Quarter: 2025Q3

REPORT INFORMATION
  Report Type: Report from Study
  Country: CA (occurrence: CA)
  Receive Date: 20230206
  Receipt Date: 20250820
  Transmission Date: 20251021
  Serious: Yes (Hospitalization, Other)
  Sender: TAKEDA
  Company Number: CA-TAKEDA-2023TUS012355

PATIENT
  Age: 41 Year
  Sex: Female

DRUGS (7)
  1. VEDOLIZUMAB [Suspect]
     Active Substance: VEDOLIZUMAB
     Indication: Crohn^s disease
  2. VEDOLIZUMAB [Suspect]
     Active Substance: VEDOLIZUMAB
     Indication: Crohn^s disease
     Dosage: 108 MILLIGRAM, Q2WEEKS
     Dates: start: 20230511
  3. VEDOLIZUMAB [Suspect]
     Active Substance: VEDOLIZUMAB
     Dosage: 108 MILLIGRAM, 1/WEEK
     Dates: start: 2025
  4. FENTANYL [Concomitant]
     Active Substance: FENTANYL
  5. DILAUDID [Concomitant]
     Active Substance: HYDROMORPHONE HYDROCHLORIDE
  6. NABILONE [Concomitant]
     Active Substance: NABILONE
  7. KETAMINE [Concomitant]
     Active Substance: KETAMINE
     Dosage: UNK UNK, 1/WEEK

REACTIONS (31)
  - Intestinal anastomosis complication [Unknown]
  - Crohn^s disease [Unknown]
  - Intestinal obstruction [Recovered/Resolved]
  - Faecaloma [Unknown]
  - Impaired gastric emptying [Unknown]
  - Pneumonia aspiration [Unknown]
  - Device dislocation [Unknown]
  - Wound cellulitis [Unknown]
  - Breast cancer female [Not Recovered/Not Resolved]
  - Hypokalaemia [Unknown]
  - Enteritis infectious [Unknown]
  - Clostridium difficile infection [Unknown]
  - Frequent bowel movements [Unknown]
  - Gastrointestinal microorganism overgrowth [Unknown]
  - Stoma site infection [Recovering/Resolving]
  - Fibromyalgia [Unknown]
  - Hypovitaminosis [Unknown]
  - Quality of life decreased [Unknown]
  - Adrenal disorder [Unknown]
  - Faeces soft [Unknown]
  - Diarrhoea [Unknown]
  - Hypophagia [Unknown]
  - Mouth ulceration [Unknown]
  - Stoma site discharge [Unknown]
  - Inappropriate schedule of product administration [Unknown]
  - Abdominal pain [Unknown]
  - Abdominal distension [Unknown]
  - Constipation [Unknown]
  - Nausea [Unknown]
  - Fatigue [Not Recovered/Not Resolved]
  - Arthralgia [Unknown]

NARRATIVE: CASE EVENT DATE: 20240229
